FAERS Safety Report 10175714 (Version 1)
Quarter: 2014Q2

REPORT INFORMATION
  Report Type: Spontaneous
  Country: AU (occurrence: AU)
  Receive Date: 20140516
  Receipt Date: 20140516
  Transmission Date: 20141212
  Serious: Yes (Hospitalization)
  Sender: FDA-Public Use
  Company Number: AU-MERCK-1405AUS007197

PATIENT
  Age: 39 Year
  Sex: Female
  Weight: 65 kg

DRUGS (1)
  1. ROCURONIUM BROMIDE [Suspect]
     Dosage: UNK, ONCE
     Route: 042
     Dates: start: 20131111, end: 20131111

REACTIONS (3)
  - Hypoventilation [Unknown]
  - Rash [Unknown]
  - Tachycardia [Unknown]
